FAERS Safety Report 12819629 (Version 1)
Quarter: 2016Q4

REPORT INFORMATION
  Report Type: Spontaneous
  Country: US (occurrence: US)
  Receive Date: 20161006
  Receipt Date: 20161006
  Transmission Date: 20170207
  Serious: Yes (Other)
  Sender: FDA-Public Use
  Company Number: None

PATIENT
  Age: 28 Year
  Sex: Female
  Weight: 45 kg

DRUGS (4)
  1. DULOXETINE 30 MG [Suspect]
     Active Substance: DULOXETINE
     Indication: FIBROMYALGIA
     Dosage: ?          QUANTITY:1 CAPSULE(S);?
     Route: 048
     Dates: start: 20161004, end: 20161004
  2. NEXIUM [Concomitant]
     Active Substance: ESOMEPRAZOLE MAGNESIUM
  3. TRI-SPRINTEC [Concomitant]
     Active Substance: ETHINYL ESTRADIOL\NORGESTIMATE
  4. ADULT MULTI-VITAMIN [Concomitant]

REACTIONS (6)
  - Anxiety [None]
  - Loss of consciousness [None]
  - Vertigo [None]
  - Syncope [None]
  - Dizziness [None]
  - Restlessness [None]

NARRATIVE: CASE EVENT DATE: 20161005
